FAERS Safety Report 13723082 (Version 1)
Quarter: 2017Q3

REPORT INFORMATION
  Report Type: Spontaneous
  Country: US (occurrence: US)
  Receive Date: 20170706
  Receipt Date: 20170706
  Transmission Date: 20171127
  Serious: No
  Sender: FDA-Public Use
  Company Number: US-JNJFOC-20161104176

PATIENT
  Age: 68 Year
  Sex: Female
  Weight: 74.84 kg

DRUGS (2)
  1. IMODIUM A-D [Suspect]
     Active Substance: LOPERAMIDE HYDROCHLORIDE
     Indication: DIARRHOEA
     Dosage: FIRST TIME TOOK 2 CAPLETS,TOOK 1 CAPLET WITH EACH STOOL AND WAS NOT TAKING MORE THAN 4 CAPLETS A DAY
     Route: 048
     Dates: start: 20161028
  2. IMODIUM A-D [Suspect]
     Active Substance: LOPERAMIDE HYDROCHLORIDE
     Route: 048

REACTIONS (1)
  - Drug ineffective [Unknown]
